FAERS Safety Report 20578407 (Version 1)
Quarter: 2022Q1

REPORT INFORMATION
  Report Type: Spontaneous
  Country: AT (occurrence: None)
  Receive Date: 20220310
  Receipt Date: 20220310
  Transmission Date: 20220424
  Serious: Yes (Other)
  Sender: FDA-Public Use
  Company Number: AT-ROCHE-3042732

PATIENT
  Age: 48 Year
  Sex: Female

DRUGS (20)
  1. RITUXIMAB [Suspect]
     Active Substance: RITUXIMAB
     Indication: Diffuse large B-cell lymphoma
     Dosage: SIX CYCLES OF R-CHOP
     Route: 065
     Dates: start: 201407, end: 201411
  2. RITUXIMAB [Suspect]
     Active Substance: RITUXIMAB
     Indication: Follicular lymphoma
     Dosage: MAINTENANCE THERAPY
     Route: 065
     Dates: start: 201412, end: 201612
  3. RITUXIMAB [Suspect]
     Active Substance: RITUXIMAB
     Dosage: BR THERAPY, 6 CYCLES
     Route: 065
     Dates: start: 201802, end: 201807
  4. RITUXIMAB [Suspect]
     Active Substance: RITUXIMAB
     Dosage: MAINTENANCE THERAPY
     Route: 065
     Dates: start: 201807, end: 201906
  5. RITUXIMAB [Suspect]
     Active Substance: RITUXIMAB
     Dosage: R-DHAP, 1 CYCLE
     Route: 065
     Dates: start: 202002
  6. RITUXIMAB [Suspect]
     Active Substance: RITUXIMAB
     Dosage: R-ICE, TWO CYCLES
     Route: 065
     Dates: start: 202003, end: 202004
  7. RITUXIMAB [Suspect]
     Active Substance: RITUXIMAB
     Dosage: BRIDGING THERAPY
     Route: 065
     Dates: start: 202006, end: 202007
  8. POLIVY [Suspect]
     Active Substance: POLATUZUMAB VEDOTIN-PIIQ
     Indication: Diffuse large B-cell lymphoma
     Dosage: BRIDGING THERAPY
     Route: 065
     Dates: start: 202006, end: 202007
  9. POLIVY [Suspect]
     Active Substance: POLATUZUMAB VEDOTIN-PIIQ
     Indication: Follicular lymphoma
  10. CYCLOPHOSPHAMIDE [Concomitant]
     Active Substance: CYCLOPHOSPHAMIDE
     Indication: Diffuse large B-cell lymphoma
     Dosage: SIX CYCLES OF R-CHOP
     Dates: start: 201407, end: 201411
  11. DOXORUBICIN [Concomitant]
     Active Substance: DOXORUBICIN
     Indication: Diffuse large B-cell lymphoma
     Dosage: SIX CYCLES OF R-CHOP
     Dates: start: 201407, end: 201411
  12. VINCRISTINE [Concomitant]
     Active Substance: VINCRISTINE
     Indication: Diffuse large B-cell lymphoma
     Dosage: SIX CYCLES OF R-CHOP
     Dates: start: 201407, end: 201411
  13. PREDNISOLONE [Concomitant]
     Active Substance: PREDNISOLONE
     Indication: Diffuse large B-cell lymphoma
     Dosage: SIX CYCLES OF R-CHOP
     Dates: start: 201407, end: 201411
  14. BENDAMUSTINE [Concomitant]
     Active Substance: BENDAMUSTINE
     Indication: Diffuse large B-cell lymphoma
     Dosage: BR THERAPY, 6 CYCLES
     Dates: start: 201802, end: 201807
  15. BENDAMUSTINE [Concomitant]
     Active Substance: BENDAMUSTINE
     Dosage: BRIDGING THERAPY
     Dates: start: 202006, end: 202007
  16. DEXAMETHASONE [Concomitant]
     Active Substance: DEXAMETHASONE
     Indication: Diffuse large B-cell lymphoma
     Dates: start: 202002
  17. CISPLATIN [Concomitant]
     Active Substance: CISPLATIN
     Indication: Diffuse large B-cell lymphoma
     Dates: start: 202002
  18. IFOSFAMIDE [Concomitant]
     Active Substance: IFOSFAMIDE
     Indication: Diffuse large B-cell lymphoma
     Dosage: R-ICE
     Dates: start: 202003, end: 202004
  19. CARBOPLATIN [Concomitant]
     Active Substance: CARBOPLATIN
     Indication: Diffuse large B-cell lymphoma
     Dosage: RICE
     Dates: start: 202003, end: 202004
  20. ETOPOSIDE [Concomitant]
     Active Substance: ETOPOSIDE
     Indication: Diffuse large B-cell lymphoma
     Dosage: RICE
     Dates: start: 202003, end: 202004

REACTIONS (2)
  - Disease progression [Unknown]
  - Renal failure [Unknown]

NARRATIVE: CASE EVENT DATE: 20180201
